FAERS Safety Report 4896835-1 (Version None)
Quarter: 2006Q1

REPORT INFORMATION
  Report Type: 
  Country: None (occurrence: None)
  Receive Date: 20060131
  Receipt Date: 20060105
  Transmission Date: 20060701
  Serious: Yes (Hospitalization)
  Sender: FDA-Public Use
  Company Number: FR-AVENTIS-200610038FR

PATIENT
  Age: 70 Year
  Sex: Female
  Weight: 77 kg

DRUGS (7)
  1. LANTUS [Suspect]
     Indication: INSULIN-REQUIRING TYPE II DIABETES MELLITUS
     Route: 058
     Dates: start: 20041101
  2. NOVONORM [Concomitant]
     Indication: DIABETES MELLITUS
     Route: 048
  3. STAGID [Concomitant]
     Indication: DIABETES MELLITUS
     Route: 048
  4. LESCOL [Concomitant]
  5. KARDEGIC [Concomitant]
  6. CHRONADALATE [Concomitant]
  7. OLMETEC                                 /GFR/ [Concomitant]

REACTIONS (6)
  - DEHYDRATION [None]
  - DIABETES MELLITUS [None]
  - DIABETIC COMPLICATION [None]
  - ESCHERICHIA URINARY TRACT INFECTION [None]
  - KETOACIDOSIS [None]
  - RENAL FAILURE ACUTE [None]
